FAERS Safety Report 10394179 (Version 2)
Quarter: 2014Q3

REPORT INFORMATION
  Report Type: Spontaneous
  Country: JP (occurrence: JP)
  Receive Date: 20140819
  Receipt Date: 20140907
  Transmission Date: 20150326
  Serious: Yes (Death, Other)
  Sender: FDA-Public Use
  Company Number: PHHY2013JP161538

PATIENT
  Age: 62 Year
  Sex: Male

DRUGS (1)
  1. EXJADE [Suspect]
     Active Substance: DEFERASIROX
     Indication: MYELODYSPLASTIC SYNDROME
     Dosage: 15 MG/KG, UNK
     Dates: start: 201104

REACTIONS (3)
  - Serum ferritin increased [Unknown]
  - Inflammation [Unknown]
  - Death [Fatal]

NARRATIVE: CASE EVENT DATE: 201107
